FAERS Safety Report 9949346 (Version 1)
Quarter: 2014Q1

REPORT INFORMATION
  Report Type: Spontaneous
  Country: US (occurrence: US)
  Receive Date: 20140304
  Receipt Date: 20140304
  Transmission Date: 20141002
  Serious: No
  Sender: FDA-Public Use
  Company Number: US-PFIZER INC-2014059099

PATIENT
  Age: 72 Year
  Sex: Male
  Weight: 82.54 kg

DRUGS (7)
  1. LYRICA [Suspect]
     Indication: DIABETIC NEUROPATHY
     Dosage: 75 MG, 2X/DAY
     Route: 048
     Dates: start: 201312
  2. LYRICA [Suspect]
     Dosage: 75 MG, 1X/DAY
     Route: 048
  3. FLOMAX [Concomitant]
     Dosage: 0.4 MG, 1X/DAY
  4. CARDIZEM [Concomitant]
     Dosage: 180 MG, 1X/DAY
  5. ATORVASTATIN CALCIUM [Concomitant]
     Dosage: 20 MG, 1X/DAY
  6. METFORMIN [Concomitant]
     Dosage: 1000 MG, 2X/DAY
     Route: 048
  7. PROPAFENONE [Concomitant]
     Indication: ATRIAL FIBRILLATION
     Dosage: 225 MG, 2X/DAY

REACTIONS (2)
  - Somnolence [Unknown]
  - Blood glucose decreased [Unknown]
